FAERS Safety Report 15133088 (Version 2)
Quarter: 2021Q4

REPORT INFORMATION
  Report Type: Spontaneous
  Country: JP (occurrence: JP)
  Receive Date: 20180712
  Receipt Date: 20211231
  Transmission Date: 20220303
  Serious: Yes (Death, Life-Threatening, Hospitalization, Other)
  Sender: FDA-Public Use
  Company Number: JP-BRISTOL-MYERS SQUIBB COMPANY-BMS-2017-079244

PATIENT
  Age: 76 Year
  Sex: Male
  Weight: 55 kg

DRUGS (10)
  1. OPDIVO [Suspect]
     Active Substance: NIVOLUMAB
     Indication: Non-small cell lung cancer recurrent
     Dosage: 3 MG/KG, UNK
     Route: 041
     Dates: start: 20170725, end: 20170725
  2. PEMBROLIZUMAB [Suspect]
     Active Substance: PEMBROLIZUMAB
     Indication: Non-small cell lung cancer recurrent
     Route: 065
  3. AMLODIPINE BESILATE;IRBESARTAN [Concomitant]
     Indication: Circulatory collapse
     Dosage: IRBESARTAN: 100 MG, AMLODIPINE: 5 MG
     Route: 048
     Dates: start: 20170603, end: 20170726
  4. AMLODIPINE BESILATE;IRBESARTAN [Concomitant]
     Indication: Hypertension
  5. NEXIUM [Concomitant]
     Active Substance: ESOMEPRAZOLE MAGNESIUM
     Indication: Medication error
     Dosage: 20 MG, EVERYDAY
     Route: 048
     Dates: start: 20170603, end: 20170726
  6. TRAMCET [Concomitant]
     Active Substance: ACETAMINOPHEN\TRAMADOL
     Indication: Medication error
     Dosage: UNK, Q8H
     Route: 048
     Dates: start: 20170606, end: 20170726
  7. PROCHLORPERAZINE MALEATE [Concomitant]
     Active Substance: PROCHLORPERAZINE MALEATE
     Indication: Medication error
     Dosage: 5 MILLIGRAM, Q8H
     Route: 048
     Dates: start: 20170616, end: 20170726
  8. LUNESTA [Concomitant]
     Active Substance: ESZOPICLONE
     Indication: Medication error
     Dosage: UNK
     Route: 048
     Dates: start: 20170526, end: 20170726
  9. ROZEREM [Concomitant]
     Active Substance: RAMELTEON
     Indication: Product used for unknown indication
     Dosage: 8 MG, EVERYDAY
     Route: 048
     Dates: start: 20170623
  10. OXYCONTIN [Concomitant]
     Active Substance: OXYCODONE HYDROCHLORIDE
     Indication: Medication error
     Dosage: 5 MILLIGRAM, Q12H
     Route: 048
     Dates: start: 20170612, end: 20170726

REACTIONS (11)
  - Gastrointestinal haemorrhage [Fatal]
  - Immune-mediated lung disease [Fatal]
  - Platelet count decreased [Fatal]
  - Malignant neoplasm progression [Fatal]
  - Clostridium difficile colitis [Unknown]
  - Cardio-respiratory arrest [Unknown]
  - Lymphangiosis carcinomatosa [Unknown]
  - Disseminated intravascular coagulation [Unknown]
  - Staphylococcal infection [Unknown]
  - Pleural effusion [Unknown]
  - Intentional product use issue [Unknown]

NARRATIVE: CASE EVENT DATE: 20170727
